FAERS Safety Report 6983782-4 (Version None)
Quarter: 2010Q3

REPORT INFORMATION
  Report Type: 
  Country: None (occurrence: None)
  Receive Date: 20100914
  Receipt Date: 20090204
  Transmission Date: 20110219
  Serious: No
  Sender: FDA-Public Use
  Company Number: US-WYE-H08105309

PATIENT
  Age: 68 Year
  Sex: Male
  Weight: 83.99 kg

DRUGS (2)
  1. ADVIL LIQUI-GELS [Suspect]
     Indication: ANALGESIC THERAPY
     Dosage: 1 CAPLET AS NEEDED
     Route: 048
     Dates: start: 20090128, end: 20090202
  2. IRON [Concomitant]

REACTIONS (3)
  - BLISTER [None]
  - LIP SWELLING [None]
  - OEDEMA MOUTH [None]
